FAERS Safety Report 8820717 (Version 1)
Quarter: 2012Q4

REPORT INFORMATION
  Report Type: Report from Study
  Country: AR (occurrence: AR)
  Receive Date: 20121002
  Receipt Date: 20121002
  Transmission Date: 20130627
  Serious: Yes (Death)
  Sender: FDA-Public Use
  Company Number: PHHY2012AR085228

PATIENT
  Age: 19 Year
  Sex: Female

DRUGS (1)
  1. ICL670A [Suspect]

REACTIONS (1)
  - Death [Fatal]
